FAERS Safety Report 21233771 (Version 7)
Quarter: 2022Q3

REPORT INFORMATION
  Report Type: Report from Study
  Country: CH (occurrence: None)
  Receive Date: 20220819
  Receipt Date: 20220829
  Transmission Date: 20221027
  Serious: Yes (Hospitalization)
  Sender: FDA-Public Use
  Company Number: CH-ROCHE-3160633

PATIENT
  Age: 53 Year
  Sex: Female
  Weight: 59.3 kg

DRUGS (5)
  1. ATEZOLIZUMAB [Suspect]
     Active Substance: ATEZOLIZUMAB
     Indication: Ovarian cancer
     Dosage: ON 21/JUL/2022, MOST RECENT DOSE PRIOR TO SAE
     Route: 041
     Dates: start: 20211223
  2. BEVACIZUMAB [Suspect]
     Active Substance: BEVACIZUMAB
     Indication: Ovarian cancer
     Dosage: ON 21/JUL/2022, MOST RECENT DOSE PRIOR TO SAE
     Route: 042
     Dates: start: 20211223
  3. DOXORUBICIN HYDROCHLORIDE [Suspect]
     Active Substance: DOXORUBICIN HYDROCHLORIDE
     Indication: Ovarian cancer
     Dosage: ON 18/MAY/2022, MOST RECENT DOSE PRIOR TO SAE
     Route: 042
     Dates: start: 20211223
  4. TELEBRIX [Concomitant]
     Route: 048
     Dates: start: 20220806, end: 20220806
  5. SODIUM PICOSULFATE [Concomitant]
     Active Substance: SODIUM PICOSULFATE
     Dosage: 30 DROPS
     Route: 048
     Dates: start: 20220806

REACTIONS (2)
  - Ileus paralytic [Recovered/Resolved]
  - Pneumonia aspiration [Recovered/Resolved]

NARRATIVE: CASE EVENT DATE: 20220808
